FAERS Safety Report 7814208-6 (Version None)
Quarter: 2011Q4

REPORT INFORMATION
  Report Type: 
  Country: None (occurrence: None)
  Receive Date: 20111014
  Receipt Date: 20111006
  Transmission Date: 20120403
  Serious: Yes (Hospitalization)
  Sender: FDA-Public Use
  Company Number: CA-BRISTOL-MYERS SQUIBB COMPANY-14248470

PATIENT
  Age: 66 Year
  Sex: Female

DRUGS (14)
  1. MULTI-VITAMINS [Concomitant]
  2. ATIVAN [Concomitant]
  3. ORENCIA [Suspect]
     Indication: RHEUMATOID ARTHRITIS
     Dosage: 20OC,9DE08,6JA,3FE,31MA9,1:26MY,20AU,23SE,19OC,16DE9,10DE10,25MAY11,14SEP11.INF:38 1C71233-EXP:OC13
     Route: 042
     Dates: start: 20080626
  4. CALCIUM + VITAMIN D [Concomitant]
  5. METFORMIN HYDROCHLORIDE [Concomitant]
  6. OXYCONTIN [Concomitant]
  7. CENESTIN [Concomitant]
  8. VENTOLIN [Concomitant]
  9. ATROVENT [Concomitant]
  10. AMITRIPTYLINE HCL [Concomitant]
  11. RABEPRAZOLE SODIUM [Concomitant]
  12. PREDNISONE [Concomitant]
  13. FOLIC ACID [Concomitant]
  14. ACTONEL [Concomitant]

REACTIONS (13)
  - SEPSIS [None]
  - PAIN [None]
  - MALAISE [None]
  - NAUSEA [None]
  - NASOPHARYNGITIS [None]
  - RHEUMATOID ARTHRITIS [None]
  - PYREXIA [None]
  - DYSPEPSIA [None]
  - INSOMNIA [None]
  - FATIGUE [None]
  - HEART RATE INCREASED [None]
  - DISORIENTATION [None]
  - ASTHENIA [None]
